FAERS Safety Report 23634567 (Version 1)
Quarter: 2024Q1

REPORT INFORMATION
  Report Type: Spontaneous
  Country: CA (occurrence: CA)
  Receive Date: 20240315
  Receipt Date: 20240315
  Transmission Date: 20240410
  Serious: Yes (Hospitalization)
  Sender: FDA-Public Use
  Company Number: CA-STRIDES ARCOLAB LIMITED-2024SP002952

PATIENT
  Age: 25 Year
  Sex: Male

DRUGS (7)
  1. COLCHICINE [Suspect]
     Active Substance: COLCHICINE
     Indication: Myocarditis
     Dosage: UNK
     Route: 065
     Dates: start: 202105
  2. PREDNISOLONE [Suspect]
     Active Substance: PREDNISOLONE
     Indication: Myocarditis
     Dosage: 15 MILLIGRAM
     Route: 065
     Dates: start: 202107
  3. PREDNISOLONE [Suspect]
     Active Substance: PREDNISOLONE
     Dosage: 5 MILLIGRAM (DOSE DECREASED)
     Route: 065
     Dates: start: 202109
  4. PREDNISOLONE [Suspect]
     Active Substance: PREDNISOLONE
     Dosage: 30 MILLIGRAM (DOSE INCREASED)
     Route: 065
     Dates: start: 202109
  5. PREDNISOLONE [Suspect]
     Active Substance: PREDNISOLONE
     Dosage: 15 MILLIGRAM (DOSE DECREASED)
     Route: 065
     Dates: start: 202112
  6. ASPIRIN [Concomitant]
     Active Substance: ASPIRIN
     Indication: Myocarditis
     Dosage: UNK
     Route: 065
     Dates: start: 202105
  7. COVID-19 vaccine [Concomitant]
     Indication: COVID-19 immunisation
     Dosage: UNK (FIRST DOSE)
     Route: 065
     Dates: start: 202105

REACTIONS (4)
  - Anaemia macrocytic [Recovered/Resolved]
  - Serum ferritin increased [Recovered/Resolved]
  - COVID-19 [Unknown]
  - Off label use [Unknown]

NARRATIVE: CASE EVENT DATE: 20210901
